FAERS Safety Report 6977950-5 (Version None)
Quarter: 2010Q3

REPORT INFORMATION
  Report Type: 
  Country: None (occurrence: None)
  Receive Date: 20100913
  Receipt Date: 20100901
  Transmission Date: 20110219
  Serious: Yes (Death)
  Sender: FDA-Public Use
  Company Number: AU-PFIZER INC-2006063318

PATIENT
  Age: 73 Year
  Sex: Male
  Weight: 83 kg

DRUGS (7)
  1. SUNITINIB MALATE [Suspect]
     Indication: RENAL CELL CARCINOMA
     Dosage: 50 MG, 1X/DAY
     Route: 048
     Dates: start: 20060427, end: 20060508
  2. ALLOPURINOL [Concomitant]
     Dosage: UNK
     Route: 048
     Dates: start: 20050701, end: 20060508
  3. VERAPAMIL HCL [Concomitant]
     Dosage: UNK
     Route: 048
     Dates: start: 19980101, end: 20060508
  4. PERINDOPRIL [Concomitant]
     Dosage: UNK
     Route: 048
     Dates: start: 20020101, end: 20060508
  5. PRAZOSIN HCL [Concomitant]
     Dosage: UNK
     Route: 048
     Dates: start: 20000101, end: 20060508
  6. COD-LIVER OIL [Concomitant]
     Dosage: UNK
     Route: 048
     Dates: start: 20050701, end: 20060508
  7. CELERY SEED OIL [Concomitant]
     Dosage: UNK
     Route: 048
     Dates: start: 20050701, end: 20060508

REACTIONS (1)
  - CARDIAC ARREST [None]
